FAERS Safety Report 9617777 (Version 1)
Quarter: 2013Q4

REPORT INFORMATION
  Report Type: Spontaneous
  Country: GB (occurrence: None)
  Receive Date: 20131009
  Receipt Date: 20131009
  Transmission Date: 20140711
  Serious: Yes (Life-Threatening, Hospitalization, Other)
  Sender: FDA-Public Use
  Company Number: COL_14433_2013

PATIENT
  Age: 66 Year
  Sex: Male
  Weight: 86 kg

DRUGS (6)
  1. CHLORHEXIDINE DIGLUCONATE [Suspect]
     Indication: PREOPERATIVE CARE
     Dosage: (NI/NI/ TOPICAL)
     Dates: start: 20121111, end: 20121115
  2. ATENOLOL [Concomitant]
  3. CANDESARTAN [Concomitant]
  4. FELODIPINE [Concomitant]
  5. FINASTERIDE [Concomitant]
  6. TENOFOVIR [Concomitant]

REACTIONS (3)
  - Hypotension [None]
  - Anaphylactic reaction [None]
  - Electrocardiogram abnormal [None]
